FAERS Safety Report 10447824 (Version 1)
Quarter: 2014Q3

REPORT INFORMATION
  Report Type: Spontaneous
  Country: JP (occurrence: JP)
  Receive Date: 20140911
  Receipt Date: 20140911
  Transmission Date: 20150326
  Serious: Yes (Hospitalization)
  Sender: FDA-Public Use
  Company Number: PHHY2014JP115689

PATIENT
  Age: 96 Year
  Sex: Female

DRUGS (2)
  1. RIVASTIGMIN [Suspect]
     Active Substance: RIVASTIGMINE
     Dosage: 4.6 MG/24 HOURS (9 MG, ONCE A DAY)
     Route: 062
     Dates: start: 2014
  2. RIVASTIGMIN [Suspect]
     Active Substance: RIVASTIGMINE
     Indication: DEMENTIA ALZHEIMER^S TYPE
     Dosage: 1.9 MG/24 HOURS (4.5 MG, ONCE A DAY)
     Route: 062
     Dates: start: 201406, end: 2014

REACTIONS (2)
  - Haematemesis [Unknown]
  - Vomiting [Unknown]

NARRATIVE: CASE EVENT DATE: 20140818
